FAERS Safety Report 11821439 (Version 3)
Quarter: 2016Q3

REPORT INFORMATION
  Report Type: Spontaneous
  Country: US (occurrence: US)
  Receive Date: 20151210
  Receipt Date: 20160830
  Transmission Date: 20161109
  Serious: No
  Sender: FDA-Public Use
  Company Number: US-PFIZER INC-2015420153

PATIENT
  Age: 75 Year
  Sex: Male

DRUGS (1)
  1. LYRICA [Suspect]
     Active Substance: PREGABALIN
     Indication: NEUROMUSCULAR PAIN
     Dosage: 150 MG, 2X/DAY (1 TABLET)
     Route: 048

REACTIONS (2)
  - Product use issue [Unknown]
  - Pain [Unknown]
